FAERS Safety Report 9308397 (Version 1)
Quarter: 2013Q2

REPORT INFORMATION
  Report Type: Spontaneous
  Country: GB (occurrence: GB)
  Receive Date: 20130524
  Receipt Date: 20130524
  Transmission Date: 20140414
  Serious: Yes (Hospitalization)
  Sender: FDA-Public Use
  Company Number: GB-UCBSA-086165

PATIENT
  Age: 24 Month
  Sex: Male

DRUGS (1)
  1. KEPPRA [Suspect]
     Route: 042

REACTIONS (2)
  - Convulsion [Unknown]
  - Fluid intake restriction [Unknown]
